FAERS Safety Report 13535172 (Version 2)
Quarter: 2017Q3

REPORT INFORMATION
  Report Type: Spontaneous
  Country: US (occurrence: US)
  Receive Date: 20170511
  Receipt Date: 20170810
  Transmission Date: 20171127
  Serious: No
  Sender: FDA-Public Use
  Company Number: US-VIFOR (INTERNATIONAL) INC.-VIT-2017-00733

PATIENT
  Age: 66 Year
  Sex: Female

DRUGS (16)
  1. VELTASSA [Suspect]
     Active Substance: PATIROMER
     Indication: HYPERKALAEMIA
     Route: 048
     Dates: start: 20160812
  2. SINGULAIR [Concomitant]
     Active Substance: MONTELUKAST SODIUM
  3. LASIX [Concomitant]
     Active Substance: FUROSEMIDE
  4. COLCRYS [Concomitant]
     Active Substance: COLCHICINE
  5. CARVEDILOL. [Concomitant]
     Active Substance: CARVEDILOL
  6. COREG [Concomitant]
     Active Substance: CARVEDILOL
  7. VALSARTAN. [Concomitant]
     Active Substance: VALSARTAN
  8. SALBUTAMOL [Concomitant]
     Active Substance: ALBUTEROL
  9. VELTASSA [Suspect]
     Active Substance: PATIROMER
     Indication: ESSENTIAL HYPERTENSION
  10. TRESIBA [Concomitant]
     Active Substance: INSULIN DEGLUDEC
  11. COZAAR [Concomitant]
     Active Substance: LOSARTAN POTASSIUM
  12. PROAIR HFA [Concomitant]
     Active Substance: ALBUTEROL SULFATE
  13. TRAMADOL. [Concomitant]
     Active Substance: TRAMADOL
  14. NOVOLOG [Concomitant]
     Active Substance: INSULIN ASPART
  15. ZETIA [Concomitant]
     Active Substance: EZETIMIBE
  16. HYDROCHLOROTHIAZIDE. [Concomitant]
     Active Substance: HYDROCHLOROTHIAZIDE

REACTIONS (4)
  - Blister [Not Recovered/Not Resolved]
  - Peripheral swelling [Not Recovered/Not Resolved]
  - Constipation [Not Recovered/Not Resolved]
  - Off label use [Unknown]

NARRATIVE: CASE EVENT DATE: 20160812
